FAERS Safety Report 4342557-5 (Version None)
Quarter: 2004Q2

REPORT INFORMATION
  Report Type: 
  Country: None (occurrence: None)
  Receive Date: 20040419
  Receipt Date: 20040419
  Transmission Date: 20050107
  Serious: Yes (Life-Threatening, Hospitalization)
  Sender: FDA-Public Use
  Company Number: None

PATIENT
  Age: 56 Year
  Sex: Female
  Weight: 63.5036 kg

DRUGS (3)
  1. NARDIL [Suspect]
     Indication: DEPRESSION
     Dosage: 15 MG 6 X DAY ORALLY
     Route: 048
     Dates: start: 19810601
  2. NARDIL [Suspect]
     Indication: PANIC DISORDER
     Dosage: 15 MG 6 X DAY ORALLY
     Route: 048
     Dates: start: 19810601
  3. XANAX [Concomitant]

REACTIONS (8)
  - CEREBROVASCULAR ACCIDENT [None]
  - DRUG DEPENDENCE [None]
  - FEELING ABNORMAL [None]
  - HAEMATOMA [None]
  - HYPERSENSITIVITY [None]
  - INJURY [None]
  - NEUROLEPTIC MALIGNANT SYNDROME [None]
  - TRANSIENT ISCHAEMIC ATTACK [None]
